FAERS Safety Report 5562404-3 (Version None)
Quarter: 2007Q4

REPORT INFORMATION
  Report Type: 
  Country: None (occurrence: None)
  Receive Date: 20071215
  Receipt Date: 20070521
  Transmission Date: 20080405
  Serious: No
  Sender: FDA-Public Use
  Company Number: US-AMGEN-US225509

PATIENT
  Sex: Female

DRUGS (10)
  1. ARANESP [Suspect]
     Indication: ANAEMIA OF MALIGNANT DISEASE
     Route: 065
     Dates: start: 20070503
  2. LEVOXYL [Concomitant]
  3. FOSAMAX [Concomitant]
  4. VITAMIN CAP [Concomitant]
  5. CALCIUM [Concomitant]
  6. PRILOSEC [Concomitant]
  7. CYCLOPHOSPHAMIDE [Concomitant]
  8. DOXORUBICIN HYDROCHLORIDE [Concomitant]
  9. VINCRISTINE [Concomitant]
  10. RITUXIMAB [Concomitant]

REACTIONS (1)
  - HAEMOGLOBIN DECREASED [None]
